FAERS Safety Report 17828754 (Version 1)
Quarter: 2020Q2

REPORT INFORMATION
  Report Type: Spontaneous
  Country: US (occurrence: US)
  Receive Date: 20200527
  Receipt Date: 20200527
  Transmission Date: 20200714
  Serious: No
  Sender: FDA-Public Use
  Company Number: US-GLAXOSMITHKLINE-US2020087449

PATIENT
  Age: 87 Year
  Sex: Male

DRUGS (1)
  1. ADVAIR DISKUS [Suspect]
     Active Substance: FLUTICASONE PROPIONATE\SALMETEROL XINAFOATE
     Indication: PRODUCT USED FOR UNKNOWN INDICATION
     Dosage: 1 DF, 1D
     Route: 065
     Dates: start: 202005

REACTIONS (4)
  - Respiratory disorder [Unknown]
  - Underdose [Unknown]
  - Nasal dryness [Unknown]
  - Eye pain [Unknown]

NARRATIVE: CASE EVENT DATE: 202005
